FAERS Safety Report 7072082 (Version 2)
Quarter: 2012Q4

REPORT INFORMATION
  Report Type: 
  Country: CA (occurrence: CA)
  Receive Date: 20090804
  Receipt Date: 20121126
  Transmission Date: 20130627
  Serious: Yes (Death, Other)
  Sender: FDA-Public Use
  Company Number: PHHY2009CA17706

PATIENT
  Sex: Female

DRUGS (4)
  1. SANDOSTATIN LAR [Suspect]
     Indication: NEUROENDOCRINE CARCINOMA
     Dosage: 30 mg, every 4 weeks
     Route: 030
     Dates: start: 20060601
  2. SANDOSTATIN LAR [Suspect]
     Dosage: 30 mg, every 4 weeks
     Route: 030
     Dates: start: 20090414, end: 20090414
  3. SANDOSTATIN LAR [Suspect]
     Dosage: 30 mg, every 4 weeks
     Route: 030
     Dates: start: 20090416, end: 20090416
  4. SANDOSTATIN LAR [Suspect]
     Dosage: 30 mg every 3 weeks
     Route: 030
     Dates: end: 20121019

REACTIONS (3)
  - Death [Fatal]
  - Injection site haemorrhage [Unknown]
  - Inappropriate schedule of drug administration [Unknown]
